FAERS Safety Report 8200930-9 (Version None)
Quarter: 2012Q1

REPORT INFORMATION
  Report Type: 
  Country: None (occurrence: None)
  Receive Date: 20120308
  Receipt Date: 20120227
  Transmission Date: 20120608
  Serious: No
  Sender: FDA-Public Use
  Company Number: 2012MA002636

PATIENT
  Age: 36 Year
  Sex: Female

DRUGS (4)
  1. ACTIQ [Suspect]
     Indication: ABDOMINAL PAIN
     Dosage: QID;PO
     Route: 048
  2. ACETAMINOPHEN AND CODEINE PHOSPHATE [Suspect]
     Indication: ABDOMINAL PAIN
  3. FENTANYL [Suspect]
     Indication: ABDOMINAL PAIN
     Dosage: 225 UG;TDER
     Route: 062
  4. MORPHINE SULFATE INJ [Suspect]
     Indication: ABDOMINAL PAIN
     Dosage: PO
     Route: 048

REACTIONS (3)
  - DRUG EFFECT DECREASED [None]
  - CHOLANGITIS [None]
  - PANCREATITIS ACUTE [None]
